FAERS Safety Report 6132830-2 (Version None)
Quarter: 2009Q1

REPORT INFORMATION
  Report Type: 
  Country: None (occurrence: None)
  Receive Date: 20090324
  Receipt Date: 20090316
  Transmission Date: 20090719
  Serious: Yes (Death)
  Sender: FDA-Public Use
  Company Number: 1000005306

PATIENT
  Age: 27 Year
  Sex: Male

DRUGS (4)
  1. ESCITALOPRAM [Suspect]
  2. ZYPREXA [Suspect]
  3. FLUOXETINE [Suspect]
  4. PROCYCLIDINE HYDROCHLORIDE 2MG TAB [Suspect]

REACTIONS (1)
  - DRUG TOXICITY [None]
